FAERS Safety Report 13960933 (Version 1)
Quarter: 2017Q3

REPORT INFORMATION
  Report Type: Spontaneous
  Country: US (occurrence: US)
  Receive Date: 20170912
  Receipt Date: 20170912
  Transmission Date: 20171128
  Serious: Yes (Other)
  Sender: FDA-Public Use
  Company Number: US-COLLEGIUM PHARMACEUTICAL, INC.-2017CGM00081

PATIENT
  Age: 63 Year
  Sex: Female

DRUGS (5)
  1. VANCOMYCIN [Concomitant]
     Active Substance: VANCOMYCIN
     Indication: ANTIBIOTIC PROPHYLAXIS
     Route: 065
  2. OXYCODONE [Suspect]
     Active Substance: OXYCODONE
     Dosage: 15-30 MG EVERY 4 HOURS
     Route: 065
  3. VORICONAZOLE. [Suspect]
     Active Substance: VORICONAZOLE
     Indication: ANTIBIOTIC PROPHYLAXIS
     Route: 065
  4. OXYCODONE [Suspect]
     Active Substance: OXYCODONE
     Indication: MUSCULOSKELETAL PAIN
     Dosage: 30 MG, EVERY 12 HOURS
     Route: 065
  5. PIPERACILLIN AND TAZOBACTAM [Concomitant]
     Active Substance: PIPERACILLIN SODIUM\TAZOBACTAM SODIUM
     Indication: ANTIBIOTIC PROPHYLAXIS
     Route: 065

REACTIONS (4)
  - Myoclonus [Recovered/Resolved]
  - Drug interaction [Recovered/Resolved]
  - Delirium [Recovered/Resolved]
  - Sedation [Recovered/Resolved]
